FAERS Safety Report 11670369 (Version 1)
Quarter: 2015Q4

REPORT INFORMATION
  Report Type: Spontaneous
  Country: US (occurrence: US)
  Receive Date: 20151028
  Receipt Date: 20151028
  Transmission Date: 20160304
  Serious: Yes (Hospitalization, Other)
  Sender: FDA-Public Use
  Company Number: PHHY2015US136985

PATIENT
  Age: 66 Year
  Sex: Female

DRUGS (6)
  1. VALACICLOVIR [Concomitant]
     Active Substance: VALACYCLOVIR HYDROCHLORIDE
     Indication: ULCERATIVE KERATITIS
     Dosage: 1 G, TID
     Route: 048
  2. LIDOC [Concomitant]
     Active Substance: LIDOCAINE
     Indication: CATARACT
     Route: 065
  3. VANCOMYCIN [Suspect]
     Active Substance: VANCOMYCIN
     Indication: CATARACT
     Dosage: 1 MG, UNK
     Route: 065
  4. PREDNISONE. [Concomitant]
     Active Substance: PREDNISONE
     Dosage: 60 MG, UNK
  5. SODIUM HYALURONATE [Concomitant]
     Active Substance: HYALURONATE SODIUM
     Indication: CATARACT
     Route: 065
  6. PREDNISONE. [Concomitant]
     Active Substance: PREDNISONE
     Indication: ULCERATIVE KERATITIS
     Dosage: 40 MG, QD
     Route: 048

REACTIONS (2)
  - Retinal vasculitis [Recovered/Resolved]
  - Glaucoma [Recovered/Resolved]
